FAERS Safety Report 18558539 (Version 2)
Quarter: 2021Q1

REPORT INFORMATION
  Report Type: Spontaneous
  Country: TR (occurrence: TR)
  Receive Date: 20201130
  Receipt Date: 20210105
  Transmission Date: 20210419
  Serious: Yes (Other)
  Sender: FDA-Public Use
  Company Number: NVSC2020TR309801

PATIENT
  Age: 64 Year
  Sex: Female
  Weight: 65 kg

DRUGS (3)
  1. METHOTREXATE. [Concomitant]
     Active Substance: METHOTREXATE
     Indication: PACHYMENINGITIS
     Dosage: 10 MG
     Route: 065
  2. VERXANT [Suspect]
     Active Substance: SECUKINUMAB
     Indication: PRODUCT USED FOR UNKNOWN INDICATION
     Dosage: 300 MG
     Route: 058
     Dates: start: 20191213, end: 20200814
  3. PREDNOL [Concomitant]
     Indication: ARTHRITIS
     Dosage: 4 MG
     Route: 065

REACTIONS (4)
  - C-reactive protein increased [Unknown]
  - Blood creatinine increased [Unknown]
  - Blood urea increased [Unknown]
  - Bile duct cancer [Not Recovered/Not Resolved]
